FAERS Safety Report 9291752 (Version 10)
Quarter: 2013Q4

REPORT INFORMATION
  Report Type: Report from Study
  Country: CA (occurrence: CA)
  Receive Date: 20130516
  Receipt Date: 20131121
  Transmission Date: 20140711
  Serious: No
  Sender: FDA-Public Use
  Company Number: CA-ROCHE-1146956

PATIENT
  Age: 67 Year
  Sex: Female
  Weight: 87 kg

DRUGS (7)
  1. ACTEMRA [Suspect]
     Indication: RHEUMATOID ARTHRITIS
     Route: 042
     Dates: start: 20110818
  2. ACTEMRA [Suspect]
     Route: 042
     Dates: start: 20121016
  3. ACTEMRA [Suspect]
     Route: 042
     Dates: start: 20130531
  4. PREDNISONE [Concomitant]
  5. CELEBREX [Concomitant]
  6. NEXIUM [Concomitant]
  7. OMEGA 3 [Concomitant]

REACTIONS (8)
  - Nasopharyngitis [Not Recovered/Not Resolved]
  - Lower respiratory tract infection [Not Recovered/Not Resolved]
  - Weight increased [Not Recovered/Not Resolved]
  - Dyspnoea [Not Recovered/Not Resolved]
  - Lung infection [Unknown]
  - Increased upper airway secretion [Not Recovered/Not Resolved]
  - Hypotension [Unknown]
  - Labile blood pressure [Not Recovered/Not Resolved]
